FAERS Safety Report 24291185 (Version 2)
Quarter: 2024Q4

REPORT INFORMATION
  Report Type: Spontaneous
  Country: US (occurrence: US)
  Receive Date: 20240906
  Receipt Date: 20241110
  Transmission Date: 20250114
  Serious: Yes (Other)
  Sender: NOVARTIS
  Company Number: US-002147023-NVSC2024US179138

PATIENT
  Sex: Female

DRUGS (2)
  1. ILARIS [Interacting]
     Active Substance: CANAKINUMAB
     Indication: Familial mediterranean fever
     Dosage: 150 MG, QMO (REDUCED DOSE: ONCE EVERY 6 MONTHS)
     Route: 058
  2. ILARIS [Interacting]
     Active Substance: CANAKINUMAB
     Dosage: 150 MG, QMO
     Route: 058

REACTIONS (1)
  - Leukopenia [Unknown]
